FAERS Safety Report 9896745 (Version 1)
Quarter: 2014Q1

REPORT INFORMATION
  Report Type: Spontaneous
  Country: US (occurrence: US)
  Receive Date: 20140213
  Receipt Date: 20140213
  Transmission Date: 20141002
  Serious: No
  Sender: FDA-Public Use
  Company Number: US-BRISTOL-MYERS SQUIBB COMPANY-19177906

PATIENT
  Age: 50 Year
  Sex: Female
  Weight: 74.83 kg

DRUGS (11)
  1. ABATACEPT SUBQ INJECTION 125MG/ML [Suspect]
     Indication: RHEUMATOID ARTHRITIS
     Route: 058
  2. PEPCID [Concomitant]
     Dosage: TABS
  3. PREDNISONE [Concomitant]
     Dosage: TABS
  4. METHOTREXATE [Concomitant]
     Dosage: TABS
  5. XELJANZ [Concomitant]
     Dosage: TABS
  6. CALCITRIOL [Concomitant]
     Dosage: CAPS
  7. BYSTOLIC [Concomitant]
     Dosage: TABS
  8. MULTIVITAMIN [Concomitant]
     Dosage: CAPS
  9. FOLIC ACID [Concomitant]
     Dosage: TABS
  10. TYLENOL PM [Concomitant]
     Dosage: TABS EX STR
  11. TRIAMTERENE + HCTZ [Concomitant]
     Dosage: 1DF:37.5-25 UNITS NOS?CAPS

REACTIONS (1)
  - Drug ineffective [Unknown]
